FAERS Safety Report 4792748-4 (Version None)
Quarter: 2005Q4

REPORT INFORMATION
  Report Type: 
  Country: None (occurrence: None)
  Receive Date: 20051010
  Receipt Date: 20050707
  Transmission Date: 20060501
  Serious: Yes (Other)
  Sender: FDA-Public Use
  Company Number: PHRM2005FR02080

PATIENT
  Age: 69 Year
  Sex: Male
  Weight: 79 kg

DRUGS (3)
  1. PARLODEL [Suspect]
     Indication: GYNAECOMASTIA
     Dosage: 3.75 MG/DAY
     Route: 048
     Dates: start: 19990101
  2. ALLOPURINOL [Concomitant]
     Indication: HYPERPROLACTINAEMIA
     Dosage: 100 MG, QD
     Route: 048
     Dates: start: 19990101
  3. COVERSYL [Concomitant]
     Indication: HYPERTENSION
     Dosage: 1 DF, QD
     Route: 048

REACTIONS (3)
  - DRUG INTERACTION [None]
  - PROSTATE CANCER [None]
  - PROSTATIC SPECIFIC ANTIGEN INCREASED [None]
